FAERS Safety Report 24322523 (Version 1)
Quarter: 2024Q3

REPORT INFORMATION
  Report Type: Report from Study
  Country: US (occurrence: US)
  Receive Date: 20240916
  Receipt Date: 20240916
  Transmission Date: 20241017
  Serious: No
  Sender: ROCHE
  Company Number: US-ROCHE-10000081874

PATIENT
  Age: 61 Year
  Sex: Female

DRUGS (3)
  1. OCREVUS [Suspect]
     Active Substance: OCRELIZUMAB
     Indication: Relapsing multiple sclerosis
     Dosage: DATE OF TREATMENT: 22/MAY/2020, 18/DEC/2020, 13/JAN/2023.
     Route: 042
     Dates: start: 20191010
  2. COPAXONE [Concomitant]
     Active Substance: GLATIRAMER ACETATE
  3. AVONEX [Concomitant]
     Active Substance: INTERFERON BETA-1A

REACTIONS (1)
  - COVID-19 [Recovered/Resolved]

NARRATIVE: CASE EVENT DATE: 20240825
